FAERS Safety Report 6118832-0 (Version None)
Quarter: 2009Q1

REPORT INFORMATION
  Report Type: 
  Country: None (occurrence: None)
  Receive Date: 20090316
  Receipt Date: 20090311
  Transmission Date: 20090719
  Serious: Yes (Other)
  Sender: FDA-Public Use
  Company Number: CN-BRISTOL-MYERS SQUIBB COMPANY-14542203

PATIENT
  Sex: Female

DRUGS (3)
  1. MAXIPIME [Suspect]
     Indication: LUNG INFECTION
     Dosage: 2G PER 12 HOURS
  2. LEVOFLOXACIN [Suspect]
     Dosage: GIVEN FOR 2 DAYS
  3. AMINOPHYLLINE [Suspect]

REACTIONS (2)
  - LIVER FUNCTION TEST ABNORMAL [None]
  - VOMITING [None]
